FAERS Safety Report 8251875-X (Version None)
Quarter: 2012Q2

REPORT INFORMATION
  Report Type: 
  Country: None (occurrence: None)
  Receive Date: 20120402
  Receipt Date: 20120324
  Transmission Date: 20120825
  Serious: Yes (Other)
  Sender: FDA-Public Use
  Company Number: AU-JNJFOC-20120313041

PATIENT
  Sex: Male

DRUGS (2)
  1. REMICADE [Suspect]
     Indication: CROHN'S DISEASE
     Dosage: 3 DOSES
     Route: 042
     Dates: start: 20111001
  2. REMICADE [Suspect]
     Route: 042
     Dates: start: 20120324

REACTIONS (3)
  - FATIGUE [None]
  - ARTHRALGIA [None]
  - DIARRHOEA [None]
